FAERS Safety Report 7442022-2 (Version None)
Quarter: 2011Q2

REPORT INFORMATION
  Report Type: 
  Country: None (occurrence: None)
  Receive Date: 20110428
  Receipt Date: 20110331
  Transmission Date: 20111010
  Serious: Yes (Other)
  Sender: FDA-Public Use
  Company Number: US-BAYER-201034294NA

PATIENT
  Age: 21 Year
  Sex: Female
  Weight: 134 kg

DRUGS (1)
  1. YAZ [Suspect]
     Indication: CONTRACEPTION
     Dosage: UNK
     Dates: start: 20060201, end: 20070215

REACTIONS (4)
  - BILIARY DYSKINESIA [None]
  - IRRITABLE BOWEL SYNDROME [None]
  - CHOLECYSTITIS CHRONIC [None]
  - GALLBLADDER DISORDER [None]
